FAERS Safety Report 9221912 (Version 1)
Quarter: 2013Q1

REPORT INFORMATION
  Report Type: Spontaneous
  Country: US (occurrence: None)
  Receive Date: 20120913
  Receipt Date: 20120913
  Transmission Date: 20140127
  Serious: Yes (Hospitalization)
  Sender: FDA-Public Use
  Company Number: PHEH2012US011107

PATIENT
  Age: 54 Year
  Sex: Female

DRUGS (17)
  1. EXTAVIA [Suspect]
     Indication: MULTIPLE SCLEROSIS
  2. MORPHINE [Concomitant]
  3. ALPRAZOLAM (ALPRAZOLAM) [Concomitant]
  4. SEROQUEL (QUETIAPINE FUMARATE) [Concomitant]
  5. CELEXA (CITALOPRAM HYDROBROMIDE) [Concomitant]
  6. SYMMETREL (AMANTADINE HYDROCHLORIDE) [Concomitant]
  7. LAMICTAL (MAOTRIGINE) [Concomitant]
  8. LEVOTHROID (LEVOTHYROXINE SODIUM) [Concomitant]
  9. TESSALON PERLE (BENZONATATE) [Concomitant]
  10. WARFARIN (WARFARIN) [Concomitant]
  11. PROTONIX (PANTOPRAZOLE) [Concomitant]
  12. INVEGA (PALIPERIDONE) (PALIPERIDONE) [Concomitant]
  13. SOMA (CARISOPRODOL) [Concomitant]
  14. GABAPENTIN (GABAPENTIN) [Concomitant]
  15. OXYCODONE (OXYCODONE) [Concomitant]
  16. VITAMIN D3 (COLECALCIFEROL) [Concomitant]
  17. MELATONIN (MELATONIN) [Concomitant]

REACTIONS (2)
  - Pneumonia [None]
  - Hypoxia [None]
